FAERS Safety Report 9240457 (Version 1)
Quarter: 2013Q2

REPORT INFORMATION
  Report Type: Spontaneous
  Country: US (occurrence: None)
  Receive Date: 20130417
  Receipt Date: 20130417
  Transmission Date: 20140414
  Serious: Yes (Hospitalization)
  Sender: FDA-Public Use
  Company Number: 2013AP004350

PATIENT
  Age: 39 Year
  Sex: Female

DRUGS (5)
  1. CLOPIDOGREL TABLETS USP [Suspect]
  2. HYDROCHLOROTHIAZIDE [Concomitant]
  3. SIMVASTATIN [Concomitant]
  4. FAMOTIDINE [Concomitant]
  5. ASPIRIN [Concomitant]

REACTIONS (6)
  - Hepatotoxicity [None]
  - Nausea [None]
  - Jaundice [None]
  - Increased tendency to bruise [None]
  - Ocular icterus [None]
  - Cholestasis [None]
